FAERS Safety Report 22376532 (Version 1)
Quarter: 2023Q2

REPORT INFORMATION
  Report Type: Spontaneous
  Country: DE (occurrence: DE)
  Receive Date: 20230528
  Receipt Date: 20230528
  Transmission Date: 20230721
  Serious: Yes (Life-Threatening, Congenital Anomaly, Other)
  Sender: FDA-Public Use
  Company Number: None

PATIENT
  Sex: Female
  Weight: 3 kg

DRUGS (17)
  1. MORPHINE [Suspect]
     Active Substance: MORPHINE
     Indication: Product used for unknown indication
     Dosage: UNK
     Route: 042
  2. SPIRONOLACTONE [Suspect]
     Active Substance: SPIRONOLACTONE
     Indication: Product used for unknown indication
     Route: 048
  3. IBUPROFEN [Suspect]
     Active Substance: IBUPROFEN
     Indication: Patent ductus arteriosus
     Dosage: UNK
  4. ROCURONIUM [Suspect]
     Active Substance: ROCURONIUM BROMIDE
     Indication: Product used for unknown indication
     Dosage: UNK
     Route: 042
  5. MIDAZOLAM [Suspect]
     Active Substance: MIDAZOLAM
     Indication: Product used for unknown indication
     Dosage: UNK
     Route: 042
  6. LEVOSIMENDAN [Suspect]
     Active Substance: LEVOSIMENDAN
     Indication: Pulmonary hypertension
     Dosage: UNK
     Route: 042
  7. INDOMETHACIN [Suspect]
     Active Substance: INDOMETHACIN
     Indication: Patent ductus arteriosus
     Dosage: UNK
  8. VANCOMYCIN [Suspect]
     Active Substance: VANCOMYCIN
     Indication: Device related sepsis
     Dosage: UNK
  9. CISATRACURIUM [Suspect]
     Active Substance: CISATRACURIUM
     Indication: Product used for unknown indication
     Dosage: UNK
     Route: 042
  10. MEROPENEM [Suspect]
     Active Substance: MEROPENEM
     Indication: Device related sepsis
     Dosage: UNK
  11. MILRINONE [Suspect]
     Active Substance: MILRINONE
     Indication: Pulmonary hypertension
     Dosage: UNK
     Route: 042
  12. NOREPINEPHRINE [Suspect]
     Active Substance: NOREPINEPHRINE
     Indication: Pulmonary hypertension
     Dosage: UNK
     Route: 042
  13. MACITENTAN [Suspect]
     Active Substance: MACITENTAN
     Indication: Pulmonary hypertension
     Dosage: UNK
     Route: 048
  14. SILDENAFIL [Concomitant]
     Active Substance: SILDENAFIL
     Indication: Pulmonary hypertension
     Dosage: UNK,DAYS 2-9:STARTING AND FINAL DOSE 3.1MG/KG/DAY
     Route: 042
  15. SILDENAFIL [Concomitant]
     Active Substance: SILDENAFIL
     Indication: Pulmonary hypertension
     Dosage: 1 MG (1MG INCREASE PER DOSE, FINAL DOSE 4X4MG)
  16. DEXAMETHASONE [Concomitant]
     Active Substance: DEXAMETHASONE
     Indication: Product used for unknown indication
     Dosage: UNK
     Route: 042
  17. NITRIC OXIDE [Concomitant]
     Active Substance: NITRIC OXIDE
     Indication: Pulmonary hypertension
     Dosage: UNK

REACTIONS (15)
  - Drug ineffective [Recovered/Resolved]
  - Patent ductus arteriosus [Unknown]
  - Device related sepsis [Unknown]
  - Pulmonary hypertensive crisis [Recovered/Resolved]
  - Respiratory failure [Unknown]
  - Bronchopulmonary dysplasia [Unknown]
  - Upper respiratory tract infection [Unknown]
  - Neurodevelopmental disorder [Unknown]
  - Dysphagia [Unknown]
  - Heart valve incompetence [Unknown]
  - Pallor [Unknown]
  - Lethargy [Unknown]
  - Acidosis [Unknown]
  - Product use in unapproved indication [Unknown]
  - Product use issue [Unknown]
